FAERS Safety Report 20033100 (Version 2)
Quarter: 2021Q4

REPORT INFORMATION
  Report Type: Report from Study
  Country: JP (occurrence: JP)
  Receive Date: 20211104
  Receipt Date: 20211206
  Transmission Date: 20220303
  Serious: Yes (Other)
  Sender: FDA-Public Use
  Company Number: JP-JNJFOC-20211104224

PATIENT

DRUGS (1)
  1. SIMPONI [Suspect]
     Active Substance: GOLIMUMAB
     Indication: Rheumatoid arthritis
     Dosage: DOSE UNKNOWN?GOLIMUMAB (GLM) 50MG GROUP?GLM 100MG GROUP
     Route: 058

REACTIONS (6)
  - Pneumonia [Unknown]
  - Interstitial lung disease [Unknown]
  - Neoplasm malignant [Unknown]
  - Cerebral haemorrhage [Unknown]
  - Adverse reaction [Unknown]
  - Drug ineffective [Unknown]
